FAERS Safety Report 7177584-6 (Version None)
Quarter: 2010Q4

REPORT INFORMATION
  Report Type: 
  Country: None (occurrence: None)
  Receive Date: 20101220
  Receipt Date: 20101213
  Transmission Date: 20110411
  Serious: Yes (Other)
  Sender: FDA-Public Use
  Company Number: IE-PFIZER INC-IE-WYE-H11993309

PATIENT
  Age: 38 Year
  Sex: Female

DRUGS (4)
  1. PROTIUM [Suspect]
     Indication: HELICOBACTER GASTRITIS
     Dosage: 40 MG, UNK
     Route: 048
     Dates: start: 20091002, end: 20091008
  2. AMOXICILLIN [Concomitant]
     Dosage: 1 G, 2 IN 1 D
     Route: 048
     Dates: start: 20091002, end: 20091008
  3. KLACID [Concomitant]
     Dosage: 500 MG, 2 IN 1 D
     Route: 048
     Dates: start: 20091002, end: 20091008
  4. PANADOL [Concomitant]
     Dosage: 500 MG, UNK
     Route: 048

REACTIONS (4)
  - AGGRESSION [None]
  - CONFUSIONAL STATE [None]
  - DEPRESSION [None]
  - HALLUCINATION [None]
